FAERS Safety Report 8490093-7 (Version None)
Quarter: 2012Q2

REPORT INFORMATION
  Report Type: 
  Country: None (occurrence: None)
  Receive Date: 20120626
  Receipt Date: 20120618
  Transmission Date: 20120825
  Serious: Yes (Other)
  Sender: FDA-Public Use
  Company Number: 12-099C

PATIENT
  Age: 30 Year
  Sex: Male
  Weight: 117.9352 kg

DRUGS (4)
  1. COZAAR [Suspect]
  2. ZYRTEC [Suspect]
     Dosage: 10 MG / 1 X DAILY/ ORAL
     Route: 048
     Dates: end: 20120201
  3. ZYRTEC [Suspect]
     Indication: SEASONAL ALLERGY
     Dosage: 10 MG / 1 X DAILY/ ORAL
     Route: 048
     Dates: start: 20110101
  4. VIIBRYD [Suspect]

REACTIONS (4)
  - DRY EYE [None]
  - EYE PRURITUS [None]
  - PRURITUS GENERALISED [None]
  - WITHDRAWAL SYNDROME [None]
